FAERS Safety Report 12629096 (Version 2)
Quarter: 2016Q3

REPORT INFORMATION
  Report Type: Other
  Country: TR (occurrence: TR)
  Receive Date: 20160808
  Receipt Date: 20160909
  Transmission Date: 20161109
  Serious: Yes (Other)
  Sender: FDA-Public Use
  Company Number: TR-LUPIN PHARMACEUTICALS INC.-2016-03430

PATIENT
  Age: 56 Year
  Sex: Female

DRUGS (1)
  1. LEVETIRACETAM. [Suspect]
     Active Substance: LEVETIRACETAM
     Indication: EPILEPSY
     Dosage: 1000 MG
     Route: 065

REACTIONS (4)
  - Postictal state [Recovered/Resolved]
  - Hallucination, visual [Recovered/Resolved]
  - Deja vu [Recovered/Resolved]
  - Abnormal behaviour [Recovered/Resolved]
